FAERS Safety Report 10090421 (Version 3)
Quarter: 2014Q2

REPORT INFORMATION
  Report Type: Spontaneous
  Country: US (occurrence: US)
  Receive Date: 20140421
  Receipt Date: 20140605
  Transmission Date: 20141212
  Serious: No
  Sender: FDA-Public Use
  Company Number: US-GILEAD-2014-0100069

PATIENT
  Sex: Female

DRUGS (1)
  1. LETAIRIS [Suspect]
     Indication: PRODUCT USED FOR UNKNOWN INDICATION
     Dosage: 5 MG, QD
     Route: 065
     Dates: start: 20140418

REACTIONS (5)
  - Epistaxis [Unknown]
  - Epistaxis [Unknown]
  - Peripheral swelling [Unknown]
  - Oedema [Unknown]
  - Abdominal discomfort [Unknown]
